FAERS Safety Report 19166139 (Version 2)
Quarter: 2025Q3

REPORT INFORMATION
  Report Type: Spontaneous
  Country: EU (occurrence: EU)
  Receive Date: 20210421
  Receipt Date: 20250822
  Transmission Date: 20251020
  Serious: Yes (Hospitalization, Other)
  Sender: BOEHRINGER INGELHEIM
  Company Number: EU-KRKA-ES2021K02120LIT

PATIENT
  Age: 75 Year
  Sex: Male

DRUGS (26)
  1. TAMSULOSIN [Suspect]
     Active Substance: TAMSULOSIN
     Indication: Product used for unknown indication
  2. TIOTROPIUM [Suspect]
     Active Substance: TIOTROPIUM
     Indication: Chronic obstructive pulmonary disease
  3. MORPHINE [Suspect]
     Active Substance: MORPHINE
     Indication: Dyspnoea
  4. MORPHINE [Suspect]
     Active Substance: MORPHINE
  5. ENALAPRIL [Suspect]
     Active Substance: ENALAPRIL
     Indication: Cardiac failure congestive
  6. ALLOPURINOL [Suspect]
     Active Substance: ALLOPURINOL
     Indication: Hyperuricaemia
  7. ATORVASTATIN [Suspect]
     Active Substance: ATORVASTATIN
     Indication: Dyslipidaemia
  8. BISOPROLOL [Suspect]
     Active Substance: BISOPROLOL
     Indication: Hypertension
  9. CARVEDILOL [Suspect]
     Active Substance: CARVEDILOL
     Indication: Product used for unknown indication
     Dosage: DEPENDING ON BLOOD PRESSURE
  10. EPLERENONE [Suspect]
     Active Substance: EPLERENONE
     Indication: Product used for unknown indication
  11. EPLERENONE [Suspect]
     Active Substance: EPLERENONE
  12. FUROSEMIDE [Suspect]
     Active Substance: FUROSEMIDE
     Indication: Product used for unknown indication
  13. FUROSEMIDE [Suspect]
     Active Substance: FUROSEMIDE
  14. LEVOSIMENDAN [Suspect]
     Active Substance: LEVOSIMENDAN
     Indication: Cardiac failure congestive
  15. DIGOXIN [Suspect]
     Active Substance: DIGOXIN
     Indication: Cardiac failure congestive
  16. DIGOXIN [Suspect]
     Active Substance: DIGOXIN
  17. ALBUTEROL [Suspect]
     Active Substance: ALBUTEROL
     Indication: Dyspnoea
  18. ACENOCOUMAROL [Suspect]
     Active Substance: ACENOCOUMAROL
     Indication: Arrhythmia
  19. LEVOTHYROXINE [Suspect]
     Active Substance: LEVOTHYROXINE
     Indication: Hypothyroidism
  20. BISOPROLOL FUMARATE [Suspect]
     Active Substance: BISOPROLOL FUMARATE
     Indication: Cardiac failure congestive
     Dosage: 1.25 MG, 2X PER DAY
  21. ENALAPRIL [Suspect]
     Active Substance: ENALAPRIL
     Indication: Cardiac failure congestive
  22. RISPERIDONE [Concomitant]
     Active Substance: RISPERIDONE
     Indication: Product used for unknown indication
  23. IPRATROPIUM [Concomitant]
     Active Substance: IPRATROPIUM
     Indication: Product used for unknown indication
  24. MAGNESIUM HYDROXIDE [Concomitant]
     Active Substance: MAGNESIUM HYDROXIDE
     Indication: Product used for unknown indication
  25. OMEPRAZOLE [Concomitant]
     Active Substance: OMEPRAZOLE
     Indication: Product used for unknown indication
  26. ACETAMINOPHEN [Concomitant]
     Active Substance: ACETAMINOPHEN
     Indication: Product used for unknown indication

REACTIONS (5)
  - Hypothyroidism [Unknown]
  - Drug ineffective [Unknown]
  - Hypotension [Unknown]
  - Constipation [Recovering/Resolving]
  - Off label use [Unknown]
